FAERS Safety Report 17327787 (Version 2)
Quarter: 2020Q1

REPORT INFORMATION
  Report Type: Spontaneous
  Country: PT (occurrence: PT)
  Receive Date: 20200127
  Receipt Date: 20200203
  Transmission Date: 20200409
  Serious: Yes (Hospitalization)
  Sender: FDA-Public Use
  Company Number: PT-MYLANLABS-2020M1008544

PATIENT
  Age: 67 Year
  Sex: Female

DRUGS (3)
  1. SIMVASTATIN. [Interacting]
     Active Substance: SIMVASTATIN
     Indication: DYSLIPIDAEMIA
     Dosage: UNK
  2. CLARITHROMYCIN. [Interacting]
     Active Substance: CLARITHROMYCIN
     Indication: MYCOBACTERIUM CHELONAE INFECTION
     Dosage: UNK
  3. CIPROFLOXACIN. [Suspect]
     Active Substance: CIPROFLOXACIN
     Indication: MYCOBACTERIUM CHELONAE INFECTION
     Dosage: UNK

REACTIONS (7)
  - Acute kidney injury [Recovered/Resolved]
  - Myalgia [Recovered/Resolved]
  - Drug interaction [Recovered/Resolved]
  - Diarrhoea [Recovered/Resolved]
  - Rhabdomyolysis [Recovered/Resolved]
  - Hepatocellular injury [Recovered/Resolved]
  - Nausea [Recovered/Resolved]
